FAERS Safety Report 10770724 (Version 2)
Quarter: 2015Q4

REPORT INFORMATION
  Report Type: Spontaneous
  Country: US (occurrence: US)
  Receive Date: 20150206
  Receipt Date: 20151016
  Transmission Date: 20160304
  Serious: Yes (Other)
  Sender: FDA-Public Use
  Company Number: US-BAYER-2015-017491

PATIENT
  Age: 45 Year
  Sex: Female

DRUGS (4)
  1. OCELLA [Suspect]
     Active Substance: DROSPIRENONE\ETHINYL ESTRADIOL
     Dosage: UNK
     Dates: start: 20060403, end: 200611
  2. YAZ [Suspect]
     Active Substance: DROSPIRENONE\ETHINYL ESTRADIOL
     Dosage: UNK
     Route: 048
     Dates: start: 20060403, end: 200611
  3. GIANVI [Suspect]
     Active Substance: DROSPIRENONE\ETHINYL ESTRADIOL
     Dosage: UNK
     Dates: start: 20060403, end: 200611
  4. YASMIN [Suspect]
     Active Substance: DROSPIRENONE\ETHINYL ESTRADIOL
     Dosage: UNK
     Dates: start: 20060403, end: 200611

REACTIONS (5)
  - Thrombophlebitis superficial [None]
  - Injury [Recovered/Resolved]
  - Pain [Recovered/Resolved]
  - Deep vein thrombosis [Recovered/Resolved]
  - Emotional distress [None]

NARRATIVE: CASE EVENT DATE: 20061117
